FAERS Safety Report 5104189-0 (Version None)
Quarter: 2006Q3

REPORT INFORMATION
  Report Type: 
  Country: None (occurrence: None)
  Receive Date: 20060911
  Receipt Date: 20060831
  Transmission Date: 20061208
  Serious: Yes (Death, Other)
  Sender: FDA-Public Use
  Company Number: 2006MP001006

PATIENT
  Age: 70 Year
  Sex: Male

DRUGS (6)
  1. AGGRASTAT (TIROFIBAN HYDROCHLORIDE) [Suspect]
     Indication: CORONARY ARTERY DISEASE
     Dosage: IV
     Route: 042
  2. ASPIRIN [Concomitant]
  3. NITRATES [Concomitant]
  4. FIBRATES [Concomitant]
  5. ADP RECEPTOR ANTAGONIST [Concomitant]
  6. DIURETICS [Concomitant]

REACTIONS (1)
  - CARDIOGENIC SHOCK [None]
